FAERS Safety Report 8915764 (Version 1)
Quarter: 2012Q4

REPORT INFORMATION
  Report Type: 
  Country: US (occurrence: US)
  Receive Date: 20121119
  Receipt Date: 20121119
  Transmission Date: 20130627
  Serious: Yes (Hospitalization)
  Sender: FDA-Public Use
  Company Number: US-ELI_LILLY_AND_COMPANY-US201209003547

PATIENT
  Sex: Male
  Weight: 101 kg

DRUGS (2)
  1. EFFIENT [Suspect]
     Indication: STENT PLACEMENT
     Dosage: 60 mg, single
     Route: 048
     Dates: start: 20110824, end: 20110824
  2. EFFIENT [Suspect]
     Dosage: 10 mg, qd
     Route: 048
     Dates: start: 20110825

REACTIONS (7)
  - Dyspnoea [Not Recovered/Not Resolved]
  - Chest pain [Not Recovered/Not Resolved]
  - Muscular weakness [Not Recovered/Not Resolved]
  - Myalgia [Not Recovered/Not Resolved]
  - Mean cell volume increased [Unknown]
  - Glycosylated haemoglobin increased [Unknown]
  - Fatigue [Not Recovered/Not Resolved]
